FAERS Safety Report 9257188 (Version 1)
Quarter: 2013Q1

REPORT INFORMATION
  Report Type: Spontaneous
  Country: US (occurrence: None)
  Receive Date: 20121212
  Receipt Date: 20121212
  Transmission Date: 20140127
  Serious: No
  Sender: FDA-Public Use
  Company Number: 1208USA007783

PATIENT
  Age: 32 Year
  Sex: Male

DRUGS (7)
  1. VICTRELIS (BOCEPREVIR) CAPSULE, 200MG [Suspect]
     Route: 048
  2. PEGASYS [Suspect]
  3. REBETOL (RIBAVIRIN) CAPSULE, 200MG [Suspect]
  4. ZOLPIDEM TARTRATE (ZOLPIDEM TARTRATE) [Concomitant]
  5. VITAMINS (UNSPECIFIED) (VITAMINS UNSPECIFIED) [Concomitant]
  6. NEUPOGEN (FILGRASTIM) [Concomitant]
  7. MILK THISTLE (MILK THISTLE) [Concomitant]

REACTIONS (6)
  - Heart rate increased [None]
  - Dry mouth [None]
  - Fatigue [None]
  - Abdominal pain upper [None]
  - Varicose vein [None]
  - Alopecia [None]
